FAERS Safety Report 9004553 (Version 1)
Quarter: 2012Q4

REPORT INFORMATION
  Report Type: Spontaneous
  Country: GB (occurrence: None)
  Receive Date: 20121227
  Receipt Date: 20121227
  Transmission Date: 20130627
  Serious: Yes (Disabling)
  Sender: FDA-Public Use
  Company Number: AUR-APL-2012-05532

PATIENT
  Age: 27 Year
  Sex: Male
  Weight: 85 kg

DRUGS (2)
  1. CIPROFLOXACIN (CIPROFLOXACIN) [Suspect]
     Indication: PROSTATITIS
     Dosage: (1.5 mg, 3)
     Route: 048
     Dates: start: 20121019, end: 20121208
  2. DOXYCYCLINE (DOXYCYCLINE) [Concomitant]

REACTIONS (5)
  - Burning sensation [None]
  - Paraesthesia [None]
  - Hypoaesthesia [None]
  - Fatigue [None]
  - Arthritis [None]
